FAERS Safety Report 20570745 (Version 1)
Quarter: 2022Q1

REPORT INFORMATION
  Report Type: Spontaneous
  Country: FR (occurrence: FR)
  Receive Date: 20220309
  Receipt Date: 20220309
  Transmission Date: 20220423
  Serious: Yes (Hospitalization)
  Sender: FDA-Public Use
  Company Number: None

PATIENT
  Age: 92 Year
  Sex: Female
  Weight: 82 kg

DRUGS (10)
  1. PANTOPRAZOLE [Suspect]
     Active Substance: PANTOPRAZOLE
     Indication: Product used for unknown indication
     Dosage: 20 MG
     Route: 048
     Dates: start: 202112, end: 20211231
  2. PERINDOPRIL [Suspect]
     Active Substance: PERINDOPRIL
     Indication: Hypertension
     Dosage: DURATION: YEARS; 10 MG;
     Route: 048
     Dates: end: 20211231
  3. RACECADOTRIL [Suspect]
     Active Substance: RACECADOTRIL
     Indication: Diarrhoea
     Route: 048
     Dates: start: 20211219, end: 20211231
  4. ACETAMINOPHEN\BELLADONNA LEAF\CAFFEINE\OPIUM [Suspect]
     Active Substance: ACETAMINOPHEN\BELLADONNA LEAF\CAFFEINE\OPIUM
     Indication: Pain
     Dosage: 1 DF;  IF NECESSARY
     Route: 048
     Dates: start: 2020, end: 20211231
  5. DIGOXIN [Suspect]
     Active Substance: DIGOXIN
     Indication: Arrhythmia
     Dosage: 0.25 MG; DIGOXINE NATIVELLE 0.25 MG, TABLET
     Route: 042
     Dates: start: 20211220, end: 20211220
  6. LERCANIDIPINE [Suspect]
     Active Substance: LERCANIDIPINE
     Indication: Hypertension
     Dosage: 10 MG; SCORED FILM-COATED TABLET; LERCANIDIPINE EG 10 MG, SCORED FILM-COATED TABLET
     Route: 048
     Dates: start: 20211219, end: 20211231
  7. ELIQUIS [Suspect]
     Active Substance: APIXABAN
     Indication: Cerebrovascular accident
     Dosage: 10 MILLIGRAM DAILY; 5MG 2/D; ELIQUIS 5 MG FILM-COATED TABLETS
     Route: 048
     Dates: start: 20211220, end: 20211231
  8. NEBIVOLOL [Concomitant]
     Active Substance: NEBIVOLOL
  9. ALLOPURINOL [Concomitant]
     Active Substance: ALLOPURINOL
  10. AMIODARONE [Concomitant]
     Active Substance: AMIODARONE

REACTIONS (2)
  - Rash maculo-papular [Recovered/Resolved]
  - Eosinophilia [Recovered/Resolved]

NARRATIVE: CASE EVENT DATE: 20211228
